FAERS Safety Report 6522790-4 (Version None)
Quarter: 2009Q4

REPORT INFORMATION
  Report Type: 
  Country: None (occurrence: None)
  Receive Date: 20091230
  Receipt Date: 20091223
  Transmission Date: 20100525
  Serious: Yes (Hospitalization)
  Sender: FDA-Public Use
  Company Number: IT-ABBOTT-09P-083-0616428-00

PATIENT
  Sex: Female

DRUGS (10)
  1. KLACID TABLETS [Suspect]
     Indication: PYREXIA
     Route: 048
     Dates: start: 20091024, end: 20091027
  2. PANTORC [Concomitant]
     Indication: PROPHYLAXIS OF NAUSEA AND VOMITING
     Route: 048
  3. TEGRETOL [Concomitant]
     Indication: DRUG USE FOR UNKNOWN INDICATION
     Dosage: 400MG DAILY
  4. ESTRADERM [Concomitant]
     Indication: DRUG USE FOR UNKNOWN INDICATION
     Route: 062
  5. PROVISACOR [Concomitant]
     Indication: MIXED HYPERLIPIDAEMIA
     Route: 048
  6. ESKIM [Concomitant]
     Indication: MIXED HYPERLIPIDAEMIA
     Route: 048
  7. MONTEGEN [Concomitant]
     Indication: ASTHMA
     Route: 048
  8. INUVER [Concomitant]
     Indication: ASTHMA
     Dosage: 100 MCG/6 MCG
     Route: 055
  9. XALATAN [Concomitant]
     Indication: DRUG USE FOR UNKNOWN INDICATION
  10. DIFMETRE [Concomitant]
     Indication: HEADACHE
     Route: 054

REACTIONS (3)
  - ALLERGIC OEDEMA [None]
  - FACE OEDEMA [None]
  - FLUSHING [None]
